FAERS Safety Report 11750406 (Version 2)
Quarter: 2015Q4

REPORT INFORMATION
  Report Type: Report from Study
  Country: US (occurrence: US)
  Receive Date: 20151118
  Receipt Date: 20151125
  Transmission Date: 20160304
  Serious: Yes (Other)
  Sender: FDA-Public Use
  Company Number: PHEH2015US023977

PATIENT
  Age: 51 Year
  Sex: Female
  Weight: 97.51 kg

DRUGS (1)
  1. GILENYA [Suspect]
     Active Substance: FINGOLIMOD HYDROCHLORIDE
     Indication: RELAPSING-REMITTING MULTIPLE SCLEROSIS
     Dosage: 0.5 MG, QD
     Route: 048
     Dates: start: 20151112

REACTIONS (6)
  - Diplopia [Unknown]
  - Electrocardiogram T wave inversion [Unknown]
  - Optic neuritis [Unknown]
  - Bradycardia [Recovered/Resolved]
  - Dry eye [Unknown]
  - Atrioventricular block first degree [Unknown]

NARRATIVE: CASE EVENT DATE: 20151112
